FAERS Safety Report 5466076-8 (Version None)
Quarter: 2007Q3

REPORT INFORMATION
  Report Type: 
  Country: None (occurrence: None)
  Receive Date: 20070924
  Receipt Date: 20070912
  Transmission Date: 20080115
  Serious: Yes (Other)
  Sender: FDA-Public Use
  Company Number: US-ELI_LILLY_AND_COMPANY-US200709002164

PATIENT
  Age: 55 Year
  Sex: Female

DRUGS (14)
  1. CYMBALTA [Suspect]
     Indication: ARTHRITIS
     Dosage: 90 MG, UNK
     Dates: start: 20070301
  2. CYMBALTA [Suspect]
     Dosage: UNK, UNK
     Dates: start: 20030101
  3. CYMBALTA [Suspect]
     Dosage: 60 MG, UNK
     Route: 048
  4. TRENTAL [Concomitant]
     Dosage: 400 MG, UNK
  5. PREDNISONE [Concomitant]
  6. THYROID TAB [Concomitant]
  7. LEVOXYL [Concomitant]
  8. ASCORBIC ACID [Concomitant]
  9. IRON [Concomitant]
  10. NEXIUM [Concomitant]
  11. LIBRIUM [Concomitant]
  12. ADVAIR DISKUS 100/50 [Concomitant]
  13. ALBUTEROL [Concomitant]
  14. CELEBREX [Concomitant]

REACTIONS (2)
  - AUTOIMMUNE HEPATITIS [None]
  - BLOOD IRON DECREASED [None]
